FAERS Safety Report 9823665 (Version 2)
Quarter: 2014Q1

REPORT INFORMATION
  Report Type: Spontaneous
  Country: US (occurrence: US)
  Receive Date: 20140116
  Receipt Date: 20140127
  Transmission Date: 20141002
  Serious: No
  Sender: FDA-Public Use
  Company Number: US-009507513-1401USA006235

PATIENT
  Age: 50 Year
  Sex: Male

DRUGS (1)
  1. MIRALAX [Suspect]
     Indication: COLONOSCOPY
     Dosage: 17 G, ONCE
     Route: 048

REACTIONS (7)
  - Hypersensitivity [Unknown]
  - Abdominal pain upper [Unknown]
  - Pyrexia [Unknown]
  - Dizziness [Unknown]
  - Abdominal pain [Unknown]
  - Nausea [Unknown]
  - Off label use [Unknown]
